FAERS Safety Report 21916591 (Version 2)
Quarter: 2023Q1

REPORT INFORMATION
  Report Type: Spontaneous
  Country: DE (occurrence: DE)
  Receive Date: 20230126
  Receipt Date: 20230207
  Transmission Date: 20230417
  Serious: Yes (Other)
  Sender: FDA-Public Use
  Company Number: DE-009507513-2301DEU008943

PATIENT
  Sex: Female

DRUGS (1)
  1. ZEPATIER [Suspect]
     Active Substance: ELBASVIR\GRAZOPREVIR
     Dosage: 50 MG / 100 MG
     Route: 048
     Dates: start: 2017, end: 20171222

REACTIONS (4)
  - Skin cancer [Unknown]
  - Skin cancer [Unknown]
  - Acquired porokeratosis [Unknown]
  - Benign neoplasm of skin [Unknown]

NARRATIVE: CASE EVENT DATE: 20180101
